FAERS Safety Report 9216206 (Version 5)
Quarter: 2014Q2

REPORT INFORMATION
  Report Type: Spontaneous
  Country: JP (occurrence: JP)
  Receive Date: 20130408
  Receipt Date: 20140428
  Transmission Date: 20141212
  Serious: Yes (Life-Threatening, Hospitalization, Other)
  Sender: FDA-Public Use
  Company Number: JP-ASTELLAS-2013JP004629

PATIENT
  Age: 79 Year
  Sex: Female

DRUGS (13)
  1. VESICARE [Suspect]
     Indication: HYPERTONIC BLADDER
     Route: 048
     Dates: start: 20090715, end: 20110511
  2. VESICARE [Interacting]
     Indication: STRESS URINARY INCONTINENCE
     Route: 048
     Dates: start: 20080717, end: 20090613
  3. VESICARE [Interacting]
     Route: 048
     Dates: start: 20090613, end: 20090715
  4. VESICARE [Interacting]
     Route: 048
     Dates: start: 20120108
  5. SPIROPENT [Interacting]
     Indication: HYPERTONIC BLADDER
     Route: 048
     Dates: start: 20051222, end: 20110112
  6. SPIROPENT [Interacting]
     Indication: STRESS URINARY INCONTINENCE
     Route: 048
     Dates: start: 20110112, end: 20110511
  7. SPIROPENT [Interacting]
     Route: 048
     Dates: start: 20120108
  8. CONIEL [Concomitant]
     Indication: HYPERTENSION
     Route: 048
     Dates: start: 20010705
  9. STARSIS [Concomitant]
     Indication: DIABETES MELLITUS
     Route: 048
     Dates: start: 20100312
  10. BONALON [Concomitant]
     Indication: OSTEOPOROSIS
     Route: 048
     Dates: start: 20020124
  11. HYPEN                              /00613801/ [Concomitant]
     Indication: LUMBAR SPINAL STENOSIS
     Route: 048
     Dates: start: 20040729
  12. ANPLAG [Concomitant]
     Indication: DIABETES MELLITUS
     Route: 048
     Dates: start: 20060223
  13. OPALMON [Concomitant]
     Indication: LUMBAR SPINAL STENOSIS
     Route: 048
     Dates: start: 20080613

REACTIONS (3)
  - Drug interaction [Recovered/Resolved]
  - Torsade de pointes [Recovered/Resolved]
  - Sick sinus syndrome [Recovered/Resolved]
